FAERS Safety Report 14477350 (Version 1)
Quarter: 2018Q1

REPORT INFORMATION
  Report Type: Report from Study
  Country: US (occurrence: US)
  Receive Date: 20180201
  Receipt Date: 20180201
  Transmission Date: 20180509
  Serious: No
  Sender: FDA-Public Use
  Company Number: US-EXELIXIS-CABO-17011135

PATIENT
  Age: 63 Year
  Sex: Male

DRUGS (22)
  1. CABOMETYX [Suspect]
     Active Substance: CABOZANTINIB S-MALATE
     Dosage: 40 MG, QD
     Route: 048
     Dates: start: 20171216
  2. KLOR-CON [Concomitant]
     Active Substance: POTASSIUM CHLORIDE
  3. OMEPRAZOLE. [Concomitant]
     Active Substance: OMEPRAZOLE
  4. HYDROCHLOROTHIAZIDE. [Concomitant]
     Active Substance: HYDROCHLOROTHIAZIDE
  5. ALPRAZOLAM. [Concomitant]
     Active Substance: ALPRAZOLAM
  6. MULTIVITAMINS [Concomitant]
     Active Substance: VITAMINS
  7. CLONIDINE. [Concomitant]
     Active Substance: CLONIDINE
  8. INLYTA [Concomitant]
     Active Substance: AXITINIB
  9. GABAPENTIN. [Concomitant]
     Active Substance: GABAPENTIN
  10. LEVOTHYROXINE. [Concomitant]
     Active Substance: LEVOTHYROXINE
  11. CABOMETYX [Suspect]
     Active Substance: CABOZANTINIB S-MALATE
     Indication: RENAL CANCER
     Dosage: 60 MG, QD
     Route: 048
     Dates: start: 20170921, end: 20171030
  12. ASA [Concomitant]
     Active Substance: ASPIRIN
  13. HYDRODIURIL [Concomitant]
     Active Substance: HYDROCHLOROTHIAZIDE
  14. MADX [Concomitant]
  15. PROCARDIA [Concomitant]
     Active Substance: NIFEDIPINE
  16. VITAMIN D [Concomitant]
     Active Substance: CHOLECALCIFEROL
  17. CYMBALTA [Concomitant]
     Active Substance: DULOXETINE HYDROCHLORIDE
  18. AVAPRO [Concomitant]
     Active Substance: IRBESARTAN
  19. IRBESARTAN. [Concomitant]
     Active Substance: IRBESARTAN
  20. AMLODIPINE [Concomitant]
     Active Substance: AMLODIPINE BESYLATE
  21. COENZYME [Concomitant]
     Active Substance: UBIDECARENONE
  22. LORAZEPAM. [Concomitant]
     Active Substance: LORAZEPAM

REACTIONS (7)
  - Fatigue [Unknown]
  - Blood pressure increased [Unknown]
  - Fatigue [Not Recovered/Not Resolved]
  - Nausea [Unknown]
  - Diarrhoea [Unknown]
  - Swelling face [Recovering/Resolving]
  - Muscular weakness [Unknown]

NARRATIVE: CASE EVENT DATE: 201709
